FAERS Safety Report 11977079 (Version 1)
Quarter: 2016Q1

REPORT INFORMATION
  Report Type: Spontaneous
  Country: US (occurrence: None)
  Receive Date: 20160128
  Receipt Date: 20160128
  Transmission Date: 20160526
  Serious: Yes (Hospitalization)
  Sender: FDA-Public Use
  Company Number: None

PATIENT
  Age: 81 Year
  Sex: Male

DRUGS (16)
  1. FUROSEMIDE. [Concomitant]
     Active Substance: FUROSEMIDE
  2. BICALUTAMIDE. [Concomitant]
     Active Substance: BICALUTAMIDE
  3. SUPRAX [Concomitant]
     Active Substance: CEFIXIME
  4. JANUVIA [Concomitant]
     Active Substance: SITAGLIPTIN PHOSPHATE
  5. SILVER SULFADIAZINE CREAM [Concomitant]
     Active Substance: SILVER SULFADIAZINE
  6. ALPRAZOLAM. [Concomitant]
     Active Substance: ALPRAZOLAM
  7. NOVOLIN [Concomitant]
     Active Substance: INSULIN HUMAN
  8. CLOPIDOGREL [Concomitant]
     Active Substance: CLOPIDOGREL BISULFATE
  9. ZYTIGA [Suspect]
     Active Substance: ABIRATERONE ACETATE
     Indication: PROSTATE CANCER
     Dosage: 4 TABLETS
     Route: 048
     Dates: start: 20141107, end: 20150110
  10. DEXILANT [Concomitant]
     Active Substance: DEXLANSOPRAZOLE
  11. POTASSIUM [Concomitant]
     Active Substance: POTASSIUM
  12. CLINDAMYCIN [Concomitant]
     Active Substance: CLINDAMYCIN\CLINDAMYCIN PHOSPHATE
  13. CEPHALEXIN. [Concomitant]
     Active Substance: CEPHALEXIN
  14. LEVETIRACETAM. [Concomitant]
     Active Substance: LEVETIRACETAM
  15. ATORVASTATIN [Concomitant]
     Active Substance: ATORVASTATIN
  16. METFORMIN [Concomitant]
     Active Substance: METFORMIN HYDROCHLORIDE

REACTIONS (6)
  - Erythema [None]
  - Skin disorder [None]
  - Swelling [None]
  - Furuncle [None]
  - Pain [None]
  - Oedema [None]

NARRATIVE: CASE EVENT DATE: 20150101
